FAERS Safety Report 7513036-9 (Version None)
Quarter: 2011Q2

REPORT INFORMATION
  Report Type: 
  Country: None (occurrence: None)
  Receive Date: 20110525
  Receipt Date: 20110525
  Transmission Date: 20111010
  Serious: Yes (Life-Threatening, Other)
  Sender: FDA-Public Use
  Company Number: None

PATIENT
  Age: 47 Year
  Sex: Male
  Weight: 77.1115 kg

DRUGS (2)
  1. SULFAMETHOXAZOLE AND TRIMETHOPRIM DOUBLE STRENGTH [Suspect]
     Indication: BACTERIAL INFECTION
     Dosage: 20 TABLETS TWICE A DAY PO
     Route: 048
     Dates: start: 20110521, end: 20110531
  2. SULFAMETHOXAZOLE AND TRIMETHOPRIM DOUBLE STRENGTH [Suspect]
     Indication: ARTHROPOD BITE
     Dosage: 20 TABLETS TWICE A DAY PO
     Route: 048
     Dates: start: 20110521, end: 20110531

REACTIONS (19)
  - NERVOUSNESS [None]
  - HEART RATE IRREGULAR [None]
  - MOOD ALTERED [None]
  - CHILLS [None]
  - ASTHENIA [None]
  - POST-TRAUMATIC STRESS DISORDER [None]
  - HEADACHE [None]
  - DYSPNOEA [None]
  - PRURITUS [None]
  - PANIC ATTACK [None]
  - CHEST PAIN [None]
  - NAUSEA [None]
  - ANXIETY [None]
  - CONFUSIONAL STATE [None]
  - ACTIVITIES OF DAILY LIVING IMPAIRED [None]
  - CHEST DISCOMFORT [None]
  - MENTAL STATUS CHANGES [None]
  - ARTHROPOD BITE [None]
  - ERYTHEMA [None]
